FAERS Safety Report 13939904 (Version 1)
Quarter: 2017Q3

REPORT INFORMATION
  Report Type: Report from Study
  Country: US (occurrence: US)
  Receive Date: 20170906
  Receipt Date: 20170906
  Transmission Date: 20171127
  Serious: Yes (Other)
  Sender: FDA-Public Use
  Company Number: US-ROCHE-1989940

PATIENT
  Age: 67 Year
  Sex: Female

DRUGS (3)
  1. ALTEPLASE. [Suspect]
     Active Substance: ALTEPLASE
     Indication: MYOCARDIAL INFARCTION
     Route: 042
  2. HEPARIN [Concomitant]
     Active Substance: HEPARIN SODIUM
     Dosage: 1,000 UNITS/H IS BEGUN 1 HOUR AFTER AN INITIAL 5,000 UNIT BOLUS
     Route: 042
  3. HEPARIN [Concomitant]
     Active Substance: HEPARIN SODIUM
     Indication: MYOCARDIAL INFARCTION
     Dosage: INITIAL 5,000 UNIT BOLUS GIVEN AT THE INITIATION OF THE RT-PA INFUSION
     Route: 040

REACTIONS (3)
  - Gastrointestinal haemorrhage [Unknown]
  - Cerebral haemorrhage [Unknown]
  - Catheter site haemorrhage [Unknown]
